FAERS Safety Report 4626085-5 (Version None)
Quarter: 2005Q2

REPORT INFORMATION
  Report Type: 
  Country: None (occurrence: None)
  Receive Date: 20050404
  Receipt Date: 20050125
  Transmission Date: 20051028
  Serious: Yes (Life-Threatening, Disabling)
  Sender: FDA-Public Use
  Company Number: US-MERCK-0501USA03909

PATIENT
  Age: 51 Year
  Sex: Female

DRUGS (10)
  1. VIOXX [Suspect]
     Indication: PAIN
     Route: 048
     Dates: start: 20001024, end: 20010216
  2. VALIUM [Concomitant]
     Route: 065
  3. ALLEGRA-D [Concomitant]
     Route: 065
  4. CLARITIN-D [Concomitant]
     Route: 065
  5. PREVACID [Concomitant]
     Route: 065
  6. ACETAMINOPHEN [Concomitant]
     Route: 065
  7. GUAIFENEX G [Concomitant]
     Route: 065
  8. ALBUTEROL [Concomitant]
     Route: 065
  9. ZITHROMAX [Concomitant]
     Route: 065
  10. LEVAQUIN [Concomitant]
     Route: 065

REACTIONS (6)
  - CHEST PAIN [None]
  - DILATATION VENTRICULAR [None]
  - EXTRASYSTOLES [None]
  - HEART RATE INCREASED [None]
  - PAIN [None]
  - PALPITATIONS [None]
